FAERS Safety Report 9681881 (Version 2)
Quarter: 2014Q1

REPORT INFORMATION
  Report Type: Report from Study
  Country: CA (occurrence: CA)
  Receive Date: 20131111
  Receipt Date: 20140220
  Transmission Date: 20141002
  Serious: Yes (Hospitalization)
  Sender: FDA-Public Use
  Company Number: CA-US-EMD SERONO, INC.-7248382

PATIENT
  Age: 37 Year
  Sex: Female

DRUGS (4)
  1. SAIZEN [Suspect]
     Indication: GROWTH HORMONE DEFICIENCY
     Route: 058
     Dates: start: 20130321
  2. CORTEF                             /00028601/ [Concomitant]
     Indication: ADRENAL INSUFFICIENCY
     Dosage: UNIT DOSE: 10-5 (UNSPECIFIED)
     Route: 048
     Dates: start: 20120419
  3. ANDROGEL [Concomitant]
     Indication: ADRENAL INSUFFICIENCY
     Dosage: I PUSH
     Route: 048
     Dates: start: 20120419
  4. DDAVP                              /00361901/ [Concomitant]
     Indication: DIABETES INSIPIDUS
     Route: 045
     Dates: start: 20120419

REACTIONS (7)
  - Vomiting [Recovered/Resolved]
  - Migraine [Not Recovered/Not Resolved]
  - Hypertension [Not Recovered/Not Resolved]
  - Thirst [Not Recovered/Not Resolved]
  - Hyponatraemia [Recovering/Resolving]
  - Fatigue [Not Recovered/Not Resolved]
  - Gastroenteritis viral [Unknown]
